FAERS Safety Report 7015584-7 (Version None)
Quarter: 2010Q3

REPORT INFORMATION
  Report Type: 
  Country: None (occurrence: None)
  Receive Date: 20100923
  Receipt Date: 20100902
  Transmission Date: 20110219
  Serious: Yes (Death, Other)
  Sender: FDA-Public Use
  Company Number: TOR 2010-0013

PATIENT
  Age: 53 Year
  Sex: Female

DRUGS (4)
  1. TOREMIFENE (TOREMIFENE) [Suspect]
     Indication: BREAST CANCER
     Dosage: 60 MG/DAY
  2. CYCLOPHOSPHAMIDE [Concomitant]
  3. 5-FLUOROURACIL [Concomitant]
  4. ADRIAMICINE [Concomitant]

REACTIONS (9)
  - BREAST CANCER METASTATIC [None]
  - HEMIPARESIS [None]
  - HYSTERECTOMY [None]
  - METASTASES TO BONE [None]
  - METASTASES TO CENTRAL NERVOUS SYSTEM [None]
  - METASTASES TO UTERUS [None]
  - SALPINGO-OOPHORECTOMY BILATERAL [None]
  - SYNCOPE [None]
  - UTERINE POLYP [None]
